FAERS Safety Report 20678658 (Version 1)
Quarter: 2022Q2

REPORT INFORMATION
  Report Type: Spontaneous
  Country: US (occurrence: US)
  Receive Date: 20220406
  Receipt Date: 20220406
  Transmission Date: 20220721
  Serious: Yes (Death, Other)
  Sender: FDA-Public Use
  Company Number: US-AMGEN-USASP2022057943

PATIENT
  Age: 14 Year
  Sex: Male

DRUGS (3)
  1. RITUXIMAB [Suspect]
     Active Substance: RITUXIMAB
     Indication: B precursor type acute leukaemia
     Dosage: UNK
     Route: 042
  2. EPRATUZUMAB [Concomitant]
     Active Substance: EPRATUZUMAB
     Dosage: UNK
     Route: 042
  3. HYDROCORTISONE [Concomitant]
     Active Substance: HYDROCORTISONE
     Dosage: UNK

REACTIONS (4)
  - B precursor type acute leukaemia [Fatal]
  - Seizure cluster [Unknown]
  - Drug effective for unapproved indication [Unknown]
  - Off label use [Unknown]
